FAERS Safety Report 14321641 (Version 1)
Quarter: 2017Q4

REPORT INFORMATION
  Report Type: Spontaneous
  Country: ES (occurrence: ES)
  Receive Date: 20171224
  Receipt Date: 20171224
  Transmission Date: 20180321
  Serious: Yes (Death)
  Sender: FDA-Public Use
  Company Number: ES-B.I. PHARMACEUTICALS,INC./RIDGEFIELD-2017-BI-067939

PATIENT
  Age: 67 Year
  Sex: Female

DRUGS (6)
  1. VITAMIN K [Concomitant]
     Active Substance: PHYTONADIONE
     Indication: UPPER GASTROINTESTINAL HAEMORRHAGE
  2. PRAXBIND [Suspect]
     Active Substance: IDARUCIZUMAB
     Indication: HYPOVOLAEMIC SHOCK
     Route: 065
     Dates: start: 20170510, end: 20170510
  3. TRANEXAMIC ACID. [Concomitant]
     Active Substance: TRANEXAMIC ACID
     Indication: HYPOVOLAEMIC SHOCK
     Route: 065
  4. PRAXBIND [Suspect]
     Active Substance: IDARUCIZUMAB
     Indication: UPPER GASTROINTESTINAL HAEMORRHAGE
  5. VITAMIN K [Concomitant]
     Active Substance: PHYTONADIONE
     Indication: HYPOVOLAEMIC SHOCK
     Route: 065
  6. TRANEXAMIC ACID. [Concomitant]
     Active Substance: TRANEXAMIC ACID
     Indication: UPPER GASTROINTESTINAL HAEMORRHAGE

REACTIONS (2)
  - Upper gastrointestinal haemorrhage [Fatal]
  - Hypovolaemic shock [Fatal]
